FAERS Safety Report 4699716-1 (Version None)
Quarter: 2005Q2

REPORT INFORMATION
  Report Type: 
  Country: None (occurrence: None)
  Receive Date: 20050207
  Receipt Date: 20050207
  Transmission Date: 20051028
  Serious: Yes (Other)
  Sender: FDA-Public Use
  Company Number: None

PATIENT
  Sex: Female
  Weight: 117.9352 kg

DRUGS (4)
  1. ACETAMINOPHEN AND OXYCODONE HCL [Suspect]
     Indication: BACK PAIN
     Dosage: 1 4 HRS PKN
  2. ALBUTERAL INHALER [Concomitant]
  3. DIAZEPAM [Concomitant]
  4. ADVAIR DISKUS 100/50 [Concomitant]

REACTIONS (2)
  - DRUG EFFECT DECREASED [None]
  - PHARMACEUTICAL PRODUCT COMPLAINT [None]
